FAERS Safety Report 10917705 (Version 1)
Quarter: 2015Q1

REPORT INFORMATION
  Report Type: Spontaneous
  Country: AE (occurrence: AE)
  Receive Date: 20150316
  Receipt Date: 20150316
  Transmission Date: 20150721
  Serious: Yes (Other)
  Sender: FDA-Public Use
  Company Number: AE-BAXTER-2015BAX012918

PATIENT
  Age: 65 Year
  Sex: Male
  Weight: 56 kg

DRUGS (2)
  1. DIANEAL WITH DEXTROSE [Suspect]
     Active Substance: CALCIUM CHLORIDE\DEXTROSE MONOHYDRATE\MAGNESIUM CHLORIDE\SODIUM CHLORIDE\SODIUM LACTATE
     Indication: PERITONEAL DIALYSIS
  2. DIANEAL WITH DEXTROSE [Suspect]
     Active Substance: CALCIUM CHLORIDE\DEXTROSE MONOHYDRATE\MAGNESIUM CHLORIDE\SODIUM CHLORIDE\SODIUM LACTATE
     Indication: CHRONIC KIDNEY DISEASE
     Route: 033
     Dates: start: 20150216, end: 20150216

REACTIONS (5)
  - Dermal sinus [Unknown]
  - Peritoneal dialysis complication [None]
  - Peritonitis bacterial [Recovered/Resolved]
  - Post procedural infection [Unknown]
  - Acinetobacter test positive [None]

NARRATIVE: CASE EVENT DATE: 20150219
